FAERS Safety Report 12557108 (Version 1)
Quarter: 2016Q3

REPORT INFORMATION
  Report Type: Spontaneous
  Country: US (occurrence: US)
  Receive Date: 20160714
  Receipt Date: 20160714
  Transmission Date: 20161109
  Serious: No
  Sender: FDA-Public Use
  Company Number: US-BAYER-2016-135945

PATIENT
  Age: 76 Year
  Sex: Female
  Weight: 45.35 kg

DRUGS (1)
  1. ALEVE PM [Suspect]
     Active Substance: DIPHENHYDRAMINE HYDROCHLORIDE\NAPROXEN SODIUM
     Dosage: UNK
     Route: 048
     Dates: start: 201605, end: 201605

REACTIONS (2)
  - Nausea [Recovered/Resolved]
  - Product use issue [None]

NARRATIVE: CASE EVENT DATE: 201605
